FAERS Safety Report 22107790 (Version 1)
Quarter: 2023Q1

REPORT INFORMATION
  Report Type: Spontaneous
  Country: DE (occurrence: DE)
  Receive Date: 20230317
  Receipt Date: 20230317
  Transmission Date: 20230417
  Serious: Yes (Hospitalization)
  Sender: FDA-Public Use
  Company Number: None

PATIENT
  Age: 69 Year
  Sex: Female
  Weight: 54 kg

DRUGS (17)
  1. MYCOPHENOLATE MOFETIL [Suspect]
     Active Substance: MYCOPHENOLATE MOFETIL
     Indication: Product used for unknown indication
     Dosage: UNK, CAPSULE
     Route: 048
  2. EVEROLIMUS [Suspect]
     Active Substance: EVEROLIMUS
     Indication: Product used for unknown indication
     Dosage: UNK, TABLET
     Route: 048
  3. EVEROLIMUS [Suspect]
     Active Substance: EVEROLIMUS
     Dosage: UNK, TABLET
     Route: 048
  4. ATORVASTATIN [Concomitant]
     Active Substance: ATORVASTATIN
     Indication: Product used for unknown indication
     Dosage: UNK, TABLET
     Route: 048
  5. Benzbromaron AL 100 [Concomitant]
     Indication: Product used for unknown indication
     Dosage: UNK, TABLET
     Route: 048
  6. CIPROFLOXACIN [Concomitant]
     Active Substance: CIPROFLOXACIN
     Indication: Product used for unknown indication
     Dosage: UNK, TABLET
     Route: 048
  7. Decostriol 0.25 mikrogramm [Concomitant]
     Indication: Product used for unknown indication
     Dosage: UNK, CAPSULE
     Route: 048
  8. GABAPENTIN [Concomitant]
     Active Substance: GABAPENTIN
     Indication: Product used for unknown indication
     Dosage: UNK, CAPSULE
     Route: 048
  9. HYDROCHLOROTHIAZIDE [Concomitant]
     Active Substance: HYDROCHLOROTHIAZIDE
     Indication: Product used for unknown indication
     Dosage: UNK, TABLET
     Route: 048
  10. Levodopa comp. ratiopharm 100 Mg/25 Mg [Concomitant]
     Indication: Product used for unknown indication
     Dosage: UNK, PROLONGED RELEASE TABLET
     Route: 048
  11. Levodopa comp. ratiopharm 200 Mg/50 Mg [Concomitant]
     Indication: Product used for unknown indication
     Dosage: UNK, PROLONGED RELEASE TABLET
     Route: 048
  12. METAMIZOL [Concomitant]
     Active Substance: METAMIZOLE SODIUM
     Indication: Product used for unknown indication
     Dosage: UNK, TABLET
     Route: 048
  13. Metohexal Succ 47,5 Mg [Concomitant]
     Indication: Product used for unknown indication
     Dosage: UNK, PROLONGED RELEASE TABLET
     Route: 048
  14. Rekawan retard 600 mg [Concomitant]
     Indication: Product used for unknown indication
     Dosage: UNK, PROLONGED RELEASE TABLET
     Route: 048
  15. SPIRONOLACTONE [Concomitant]
     Active Substance: SPIRONOLACTONE
     Indication: Product used for unknown indication
     Dosage: UNK, TABLET
     Route: 048
  16. Tavor 1.0 mg [Concomitant]
     Indication: Product used for unknown indication
     Dosage: UNK, TABLET
     Route: 048
  17. TORSEMIDE [Concomitant]
     Active Substance: TORSEMIDE
     Indication: Product used for unknown indication
     Dosage: UNK, TABLET
     Route: 048

REACTIONS (1)
  - Diarrhoea [Unknown]

NARRATIVE: CASE EVENT DATE: 20180304
